FAERS Safety Report 6549781-1 (Version None)
Quarter: 2010Q1

REPORT INFORMATION
  Report Type: 
  Country: None (occurrence: None)
  Receive Date: 20100119
  Receipt Date: 20100104
  Transmission Date: 20100710
  Serious: Yes (Hospitalization)
  Sender: FDA-Public Use
  Company Number: 1-21243586

PATIENT
  Age: 45 Year
  Sex: Female
  Weight: 69.8086 kg

DRUGS (6)
  1. FAMOTIDINE [Suspect]
     Indication: NAUSEA
     Dosage: ORAL
     Route: 048
     Dates: start: 20090626
  2. SUNITINIB MALATE [Suspect]
     Indication: BREAST CANCER
     Dosage: 37.5 MG, ONCE DAILY, ORAL
     Route: 048
     Dates: start: 20090619, end: 20090718
  3. CAPECITABINE [Suspect]
     Indication: BREAST CANCER
     Dosage: 1750 MG, TWICE DAILY, ORAL
     Route: 048
     Dates: start: 20090619
  4. PYRIDOXAL PHOSPHATE HYDRATE [Concomitant]
  5. UREA [Concomitant]
  6. SM POWDER [Concomitant]

REACTIONS (9)
  - ENTEROCOLITIS [None]
  - GASTROENTERITIS [None]
  - HAEMATOCRIT DECREASED [None]
  - HAEMOGLOBIN DECREASED [None]
  - NAUSEA [None]
  - NEUTROPHIL COUNT DECREASED [None]
  - PLATELET COUNT DECREASED [None]
  - VOMITING [None]
  - WHITE BLOOD CELL COUNT DECREASED [None]
